FAERS Safety Report 14467271 (Version 2)
Quarter: 2019Q1

REPORT INFORMATION
  Report Type: Other
  Country: US (occurrence: US)
  Receive Date: 20180131
  Receipt Date: 20190126
  Transmission Date: 20190417
  Serious: No
  Sender: FDA-Public Use
  Company Number: US-ACORDA-ACO_144534_2017

PATIENT
  Age: 52 Year
  Sex: Female
  Weight: 68.03 kg

DRUGS (5)
  1. REBIF [Suspect]
     Active Substance: INTERFERON BETA-1A
     Indication: MULTIPLE SCLEROSIS
     Dosage: 44 MCG/0.5 ML , 3X/WK
     Route: 058
     Dates: start: 20140128
  2. LEVOTHYROXINE. [Concomitant]
     Active Substance: LEVOTHYROXINE
     Indication: PRODUCT USED FOR UNKNOWN INDICATION
     Dosage: 25 MCG, QD
     Route: 048
     Dates: start: 20180129
  3. VITAMIN D [Concomitant]
     Active Substance: CHOLECALCIFEROL
     Indication: PRODUCT USED FOR UNKNOWN INDICATION
     Dosage: 5000 IU, QD
     Route: 065
  4. AMPYRA [Suspect]
     Active Substance: DALFAMPRIDINE
     Indication: MULTIPLE SCLEROSIS
     Dosage: 10 MG, Q 12 HRS (BID)
     Route: 048
     Dates: start: 20140128
  5. SERTRALINE [Concomitant]
     Active Substance: SERTRALINE HYDROCHLORIDE
     Indication: PRODUCT USED FOR UNKNOWN INDICATION
     Dosage: 100 MG, QD
     Route: 048
     Dates: start: 20180129

REACTIONS (23)
  - Urinary hesitation [Unknown]
  - Night sweats [Unknown]
  - Confusional state [Unknown]
  - Muscle spasms [Unknown]
  - Dysarthria [Unknown]
  - Hemiparesis [Unknown]
  - Injection site erythema [Unknown]
  - Fatigue [Unknown]
  - Anxiety [Unknown]
  - Balance disorder [Unknown]
  - Injection site reaction [Unknown]
  - Depression [Unknown]
  - Constipation [Unknown]
  - Injection site bruising [Not Recovered/Not Resolved]
  - Musculoskeletal stiffness [Unknown]
  - Temperature intolerance [Unknown]
  - Pruritus [Unknown]
  - Paraesthesia [Unknown]
  - Thyroid disorder [Unknown]
  - Hyperreflexia [Unknown]
  - Amnesia [Unknown]
  - Chills [Not Recovered/Not Resolved]
  - Dysphagia [Unknown]

NARRATIVE: CASE EVENT DATE: 20170101
